FAERS Safety Report 9463534 (Version 2)
Quarter: 2013Q3

REPORT INFORMATION
  Report Type: Spontaneous
  Country: DE (occurrence: DE)
  Receive Date: 20130819
  Receipt Date: 20130903
  Transmission Date: 20140515
  Serious: Yes (Other)
  Sender: FDA-Public Use
  Company Number: DE-RANBAXY-2013RR-72181

PATIENT
  Age: 1 Day
  Sex: Male

DRUGS (1)
  1. METFORMIN [Suspect]
     Indication: TYPE 2 DIABETES MELLITUS
     Dosage: UNK, DURING GESTATIONAL WEEKS 0-40.2
     Route: 064

REACTIONS (1)
  - Polycythaemia [Recovered/Resolved]
